FAERS Safety Report 4715807-0 (Version None)
Quarter: 2005Q3

REPORT INFORMATION
  Report Type: 
  Country: None (occurrence: None)
  Receive Date: 20050715
  Receipt Date: 20050715
  Transmission Date: 20060218
  Serious: Yes (Hospitalization)
  Sender: FDA-Public Use
  Company Number: None

PATIENT
  Sex: Male

DRUGS (11)
  1. WARFARIN 2 MG [Suspect]
     Indication: AORTIC VALVE REPLACEMENT
     Dosage: 2 MG DAILY ORAL
     Route: 048
  2. WARFARIN 2 MG [Suspect]
     Indication: MITRAL VALVE REPLACEMENT
     Dosage: 2 MG DAILY ORAL
     Route: 048
  3. METOPROLOL [Concomitant]
  4. LISINOPRIL [Concomitant]
  5. SIMVASTATIN [Concomitant]
  6. GEMFIBROZIL [Concomitant]
  7. FOLIC ACID [Concomitant]
  8. INSULIN [Concomitant]
  9. OMEPRAZOLE [Concomitant]
  10. AMITRIPTYLINE HCL [Concomitant]
  11. MIRTAZAPINE [Concomitant]

REACTIONS (3)
  - CONTUSION [None]
  - FAECES DISCOLOURED [None]
  - INTERNATIONAL NORMALISED RATIO INCREASED [None]
